FAERS Safety Report 5002324-6 (Version None)
Quarter: 2006Q2

REPORT INFORMATION
  Report Type: 
  Country: None (occurrence: None)
  Receive Date: 20060510
  Receipt Date: 20060503
  Transmission Date: 20061013
  Serious: Yes (Death, Hospitalization, Other)
  Sender: FDA-Public Use
  Company Number: 430031K06USA

PATIENT
  Age: 64 Year
  Sex: Male
  Weight: 68 kg

DRUGS (4)
  1. NOVANTRONE [Suspect]
     Indication: MULTIPLE SCLEROSIS
     Dosage: ONCE
     Dates: start: 20051110, end: 20051110
  2. REBIF [Suspect]
     Indication: MULTIPLE SCLEROSIS
     Dates: start: 20040709
  3. ZOLOFT [Concomitant]
  4. PREVACID [Concomitant]

REACTIONS (16)
  - ACTIVITIES OF DAILY LIVING IMPAIRED [None]
  - BACK PAIN [None]
  - CACHEXIA [None]
  - CEREBROVASCULAR ACCIDENT [None]
  - CHOKING [None]
  - COMA [None]
  - DEPRESSION [None]
  - DYSPHAGIA [None]
  - HYPOTENSION [None]
  - PNEUMONIA ASPIRATION [None]
  - PROGRESSIVE MULTIPLE SCLEROSIS [None]
  - PULMONARY CONGESTION [None]
  - SEPSIS [None]
  - THERAPY NON-RESPONDER [None]
  - URINARY TRACT INFECTION [None]
  - WEIGHT DECREASED [None]
